FAERS Safety Report 25565099 (Version 1)
Quarter: 2025Q3

REPORT INFORMATION
  Report Type: Spontaneous
  Country: EU (occurrence: EU)
  Receive Date: 20250716
  Receipt Date: 20250716
  Transmission Date: 20251021
  Serious: Yes (Other)
  Sender: RANBAXY
  Company Number: EU-SUN PHARMACEUTICAL INDUSTRIES LTD-2025RR-517139

PATIENT
  Age: 65 Year
  Sex: Female

DRUGS (3)
  1. IRINOTECAN [Interacting]
     Active Substance: IRINOTECAN
     Indication: Adenocarcinoma pancreas
     Route: 040
     Dates: start: 20241119, end: 20241209
  2. OXALIPLATIN [Interacting]
     Active Substance: OXALIPLATIN
     Indication: Adenocarcinoma pancreas
     Route: 040
     Dates: start: 20241119, end: 20241209
  3. FLUOROURACIL [Interacting]
     Active Substance: FLUOROURACIL
     Indication: Adenocarcinoma pancreas
     Route: 040
     Dates: start: 20241119, end: 20241209

REACTIONS (1)
  - Agranulocytosis [Recovered/Resolved]

NARRATIVE: CASE EVENT DATE: 20241202
